FAERS Safety Report 7151911-8 (Version None)
Quarter: 2010Q4

REPORT INFORMATION
  Report Type: 
  Country: None (occurrence: None)
  Receive Date: 20101210
  Receipt Date: 20101201
  Transmission Date: 20110411
  Serious: Yes (Hospitalization)
  Sender: FDA-Public Use
  Company Number: DE-GENENTECH-310207

PATIENT
  Sex: Male

DRUGS (2)
  1. MABTHERA [Suspect]
     Indication: MANTLE CELL LYMPHOMA
     Dosage: 375 MG/M2, UNK
     Route: 042
     Dates: start: 20100805
  2. BENDAMUSTINE [Suspect]
     Indication: MANTLE CELL LYMPHOMA
     Dosage: 90 MG, UNK
     Route: 042
     Dates: start: 20100707

REACTIONS (2)
  - PARALYSIS [None]
  - POLYNEUROPATHY [None]
